FAERS Safety Report 9315271 (Version 1)
Quarter: 2013Q2

REPORT INFORMATION
  Report Type: Spontaneous
  Country: BR (occurrence: BR)
  Receive Date: 20130529
  Receipt Date: 20130529
  Transmission Date: 20140414
  Serious: Yes (Hospitalization)
  Sender: FDA-Public Use
  Company Number: BR-ASTRAZENECA-2013SE20318

PATIENT
  Age: 740 Month
  Sex: Male

DRUGS (4)
  1. NEXIUM [Suspect]
     Indication: HIATUS HERNIA
     Route: 048
     Dates: start: 2011
  2. ATENOLOL [Concomitant]
  3. LOSARTAN [Concomitant]
  4. ECASIL [Concomitant]

REACTIONS (4)
  - Venous occlusion [Recovered/Resolved]
  - Arterial occlusive disease [Recovered/Resolved]
  - Anaemia [Recovered/Resolved]
  - Chest pain [Recovered/Resolved]
